FAERS Safety Report 13108884 (Version 1)
Quarter: 2017Q1

REPORT INFORMATION
  Report Type: Spontaneous
  Country: VE (occurrence: VE)
  Receive Date: 20170112
  Receipt Date: 20170112
  Transmission Date: 20170428
  Serious: Yes (Death, Other)
  Sender: FDA-Public Use
  Company Number: VE-GLAXOSMITHKLINE-VE2016GSK191292

PATIENT
  Sex: Female

DRUGS (2)
  1. VENTIDE [Suspect]
     Active Substance: ALBUTEROL SULFATE\BECLOMETHASONE DIPROPIONATE
     Indication: ASTHMA
     Dosage: UNK
  2. SALBUTAMOL [Suspect]
     Active Substance: ALBUTEROL
     Indication: ASTHMA

REACTIONS (4)
  - Death [Fatal]
  - Product availability issue [Not Recovered/Not Resolved]
  - Tachycardia [Unknown]
  - Respiratory failure [Fatal]
